FAERS Safety Report 6468473-0 (Version None)
Quarter: 2009Q4

REPORT INFORMATION
  Report Type: 
  Country: None (occurrence: None)
  Receive Date: 20091202
  Receipt Date: 20091202
  Transmission Date: 20100525
  Serious: Yes (Other)
  Sender: FDA-Public Use
  Company Number: None

PATIENT
  Age: 73 Year
  Sex: Male
  Weight: 72.5755 kg

DRUGS (1)
  1. BETOPTIC S [Suspect]
     Indication: GLAUCOMA
     Dosage: 1 DROP TWICE DAILY
     Dates: start: 20091008, end: 20091027

REACTIONS (3)
  - FOREIGN BODY SENSATION IN EYES [None]
  - INSTILLATION SITE PAIN [None]
  - INSTILLATION SITE PRURITUS [None]
